FAERS Safety Report 15473196 (Version 1)
Quarter: 2018Q4

REPORT INFORMATION
  Report Type: Spontaneous
  Country: US (occurrence: US)
  Receive Date: 20181008
  Receipt Date: 20181008
  Transmission Date: 20190205
  Serious: No
  Sender: FDA-Public Use
  Company Number: US-ASTRAZENECA-2018SF29274

PATIENT
  Sex: Female
  Weight: 59.9 kg

DRUGS (2)
  1. SYMLIN [Suspect]
     Active Substance: PRAMLINTIDE ACETATE
     Indication: TYPE 2 DIABETES MELLITUS
     Route: 058
  2. SYMLIN [Suspect]
     Active Substance: PRAMLINTIDE ACETATE
     Indication: TYPE 2 DIABETES MELLITUS
     Route: 058

REACTIONS (10)
  - Aneurysm [Unknown]
  - Blood calcium abnormal [Unknown]
  - Hepatic neoplasm [Unknown]
  - Nephrolithiasis [Unknown]
  - Nausea [Unknown]
  - Lung neoplasm [Unknown]
  - Body height decreased [Unknown]
  - Pancreatic neoplasm [Unknown]
  - Gallbladder neoplasm [Unknown]
  - Parathyroid tumour [Unknown]
